FAERS Safety Report 11937698 (Version 3)
Quarter: 2016Q1

REPORT INFORMATION
  Report Type: Report from Study
  Country: US (occurrence: US)
  Receive Date: 20160122
  Receipt Date: 20160322
  Transmission Date: 20160526
  Serious: No
  Sender: FDA-Public Use
  Company Number: US-AMGEN-USASL2016006425

PATIENT
  Age: 61 Year
  Sex: Female

DRUGS (1)
  1. ENBREL [Suspect]
     Active Substance: ETANERCEPT
     Indication: RHEUMATOID ARTHRITIS
     Dosage: 50MG WEEKLY
     Route: 065
     Dates: start: 20160115, end: 20160212

REACTIONS (12)
  - Pain in extremity [Recovering/Resolving]
  - Fatigue [Not Recovered/Not Resolved]
  - Sluggishness [Recovering/Resolving]
  - Disturbance in attention [Unknown]
  - Musculoskeletal pain [Recovering/Resolving]
  - Gait disturbance [Not Recovered/Not Resolved]
  - Back pain [Recovering/Resolving]
  - Dyspepsia [Recovered/Resolved]
  - Mobility decreased [Unknown]
  - Nausea [Not Recovered/Not Resolved]
  - Neck pain [Recovering/Resolving]
  - Arthralgia [Recovering/Resolving]

NARRATIVE: CASE EVENT DATE: 2016
